FAERS Safety Report 10136208 (Version 2)
Quarter: 2014Q2

REPORT INFORMATION
  Report Type: Spontaneous
  Country: CN (occurrence: CN)
  Receive Date: 20140429
  Receipt Date: 20140522
  Transmission Date: 20141212
  Serious: Yes (Hospitalization, Other)
  Sender: FDA-Public Use
  Company Number: CN-JNJFOC-20140413569

PATIENT
  Age: 40 Year
  Sex: Male
  Weight: 45 kg

DRUGS (7)
  1. TYLENOL [Suspect]
     Route: 048
  2. TYLENOL [Suspect]
     Indication: PYREXIA
     Route: 048
     Dates: start: 20130701, end: 20130702
  3. METHIMAZOLE [Suspect]
     Indication: HYPERTHYROIDISM
     Route: 048
     Dates: start: 20130601, end: 20130717
  4. PROPRANOLOL HYDROCHLORIDE [Concomitant]
     Indication: HYPERTHYROIDISM
     Route: 048
     Dates: start: 20130601, end: 20130717
  5. ADENINE [Concomitant]
     Indication: PROPHYLAXIS
     Route: 048
     Dates: start: 20130601, end: 20130717
  6. BATYLALKOHOL [Concomitant]
     Indication: PROPHYLAXIS
     Route: 048
     Dates: start: 20130601, end: 20130717
  7. HERBAL PREPARATION [Concomitant]
     Indication: PYREXIA
     Route: 048
     Dates: start: 20130701, end: 20130703

REACTIONS (2)
  - Leukopenia [Recovering/Resolving]
  - Hepatic enzyme increased [Recovering/Resolving]
